FAERS Safety Report 13701396 (Version 1)
Quarter: 2017Q2

REPORT INFORMATION
  Report Type: Spontaneous
  Country: US (occurrence: US)
  Receive Date: 20170628
  Receipt Date: 20170628
  Transmission Date: 20170830
  Serious: Yes (Other)
  Sender: FDA-Public Use
  Company Number: None

PATIENT
  Age: 47 Year
  Sex: Female
  Weight: 54.45 kg

DRUGS (2)
  1. FLONASE SENSIMIST ALLERGY RELIEF [Suspect]
     Active Substance: FLUTICASONE FUROATE
     Indication: SINUSITIS
     Dosage: ?          OTHER STRENGTH:UGM/UGM;QUANTITY:2 PUFF(S);?
     Route: 055
     Dates: start: 20170410, end: 20170628
  2. FLONASE SENSIMIST ALLERGY RELIEF [Suspect]
     Active Substance: FLUTICASONE FUROATE
     Indication: MULTIPLE ALLERGIES
     Dosage: ?          OTHER STRENGTH:UGM/UGM;QUANTITY:2 PUFF(S);?
     Route: 055
     Dates: start: 20170410, end: 20170628

REACTIONS (17)
  - Asthma [None]
  - Respiratory disorder [None]
  - Dry eye [None]
  - Pyrexia [None]
  - Abdominal distension [None]
  - Dyspepsia [None]
  - Anxiety [None]
  - Epistaxis [None]
  - Back pain [None]
  - Abdominal pain [None]
  - Diarrhoea [None]
  - Feeling hot [None]
  - Vomiting [None]
  - Urticaria [None]
  - Flatulence [None]
  - Eructation [None]
  - Condition aggravated [None]

NARRATIVE: CASE EVENT DATE: 20170510
